FAERS Safety Report 18039570 (Version 1)
Quarter: 2020Q3

REPORT INFORMATION
  Report Type: Report from Study
  Country: CA (occurrence: CA)
  Receive Date: 20200717
  Receipt Date: 20200717
  Transmission Date: 20201103
  Serious: Yes (Other)
  Sender: FDA-Public Use
  Company Number: NVSC2020CA055315

PATIENT
  Age: 69 Year
  Sex: Female

DRUGS (4)
  1. SANDOSTATIN [Suspect]
     Active Substance: OCTREOTIDE ACETATE
  2. SANDOSTATIN LAR DEPOT [Suspect]
     Active Substance: OCTREOTIDE ACETATE
     Indication: CARCINOID TUMOUR
     Dosage: 30 MG, QMO
     Route: 030
     Dates: start: 20190930
  3. SANDOSTATIN [Suspect]
     Active Substance: OCTREOTIDE ACETATE
  4. SANDOSTATIN [Suspect]
     Active Substance: OCTREOTIDE ACETATE
     Indication: CARCINOID TUMOUR
     Dosage: 100 UG, TID
     Route: 058
     Dates: start: 2019, end: 2019

REACTIONS (12)
  - Feeling abnormal [Unknown]
  - Vomiting [Unknown]
  - Decreased appetite [Unknown]
  - Dizziness [Unknown]
  - Dyspepsia [Unknown]
  - Diabetes mellitus [Unknown]
  - Taste disorder [Unknown]
  - Weight decreased [Unknown]
  - Asthenia [Unknown]
  - Nausea [Unknown]
  - Constipation [Unknown]
  - Abdominal pain upper [Unknown]

NARRATIVE: CASE EVENT DATE: 2020
